FAERS Safety Report 8155591-4 (Version None)
Quarter: 2012Q1

REPORT INFORMATION
  Report Type: 
  Country: None (occurrence: None)
  Receive Date: 20120222
  Receipt Date: 20120214
  Transmission Date: 20120608
  Serious: Yes (Hospitalization)
  Sender: FDA-Public Use
  Company Number: US-BAYER-2011-083361

PATIENT
  Age: 34 Year
  Sex: Female
  Weight: 106.58 kg

DRUGS (2)
  1. YAZ [Suspect]
     Indication: PRODUCT USED FOR UNKNOWN INDICATION
     Dosage: UNK
     Dates: start: 20070701, end: 20090301
  2. SYMBICORT [Concomitant]

REACTIONS (9)
  - CHOLECYSTITIS ACUTE [None]
  - BACK PAIN [None]
  - PAIN [None]
  - EMOTIONAL DISTRESS [None]
  - NAUSEA [None]
  - ABDOMINAL PAIN [None]
  - CHOLELITHIASIS [None]
  - VOMITING [None]
  - INJURY [None]
